FAERS Safety Report 14844837 (Version 1)
Quarter: 2018Q2

REPORT INFORMATION
  Report Type: Spontaneous
  Country: US (occurrence: US)
  Receive Date: 20180504
  Receipt Date: 20180504
  Transmission Date: 20180711
  Serious: No
  Sender: FDA-Public Use
  Company Number: US-BRISTOL-MYERS SQUIBB COMPANY-BMS-2018-040414

PATIENT
  Sex: Female
  Weight: 54.43 kg

DRUGS (1)
  1. KENALOG-40 [Suspect]
     Active Substance: TRIAMCINOLONE ACETONIDE
     Indication: SKIN DISORDER
     Dosage: UNAVAILABLE
     Route: 030
     Dates: start: 20180427

REACTIONS (6)
  - Cough [Unknown]
  - Pain [Unknown]
  - Laryngospasm [Unknown]
  - Pruritus [Unknown]
  - Dysphonia [Unknown]
  - Asthenia [Unknown]
